FAERS Safety Report 20745414 (Version 1)
Quarter: 2022Q2

REPORT INFORMATION
  Report Type: Spontaneous
  Country: US (occurrence: US)
  Receive Date: 20220425
  Receipt Date: 20220425
  Transmission Date: 20220720
  Serious: Yes (Death, Life-Threatening, Hospitalization, Other)
  Sender: FDA-Public Use
  Company Number: US-SLATE RUN PHARMACEUTICALS-22US001044

PATIENT

DRUGS (3)
  1. AZITHROMYCIN [Suspect]
     Active Substance: AZITHROMYCIN
     Indication: Maternal exposure timing unspecified
     Dosage: UNK, SINGLE
  2. AMPICILLIN [Concomitant]
     Active Substance: AMPICILLIN
     Indication: Maternal exposure timing unspecified
  3. AMOXICILLIN [Concomitant]
     Active Substance: AMOXICILLIN
     Indication: Maternal exposure timing unspecified

REACTIONS (13)
  - Streptococcal sepsis [Fatal]
  - Hypotensive crisis [Unknown]
  - Premature baby [Unknown]
  - Low birth weight baby [Unknown]
  - Apgar score low [Unknown]
  - Metabolic acidosis [Not Recovered/Not Resolved]
  - Neonatal respiratory acidosis [Recovering/Resolving]
  - Leukopenia neonatal [Unknown]
  - Thrombocytopenia neonatal [Unknown]
  - C-reactive protein increased [Unknown]
  - Amniotic cavity infection [Unknown]
  - Streptococcal infection [Unknown]
  - Foetal exposure during pregnancy [Unknown]
